FAERS Safety Report 9233376 (Version 1)
Quarter: 2013Q2

REPORT INFORMATION
  Report Type: Spontaneous
  Country: BR (occurrence: BR)
  Receive Date: 20130416
  Receipt Date: 20130416
  Transmission Date: 20140414
  Serious: Yes (Other)
  Sender: FDA-Public Use
  Company Number: BR-ELI_LILLY_AND_COMPANY-BR201304001794

PATIENT
  Age: 65 Year
  Sex: Female
  Weight: 85.6 kg

DRUGS (7)
  1. HUMALOG 50% LISPRO, 50% NPL [Suspect]
     Indication: TYPE 2 DIABETES MELLITUS
     Dosage: UNK, UNKNOWN
     Route: 058
     Dates: start: 201206
  2. HUMALOG 50% LISPRO, 50% NPL [Suspect]
     Dosage: 25 IU, EACH MORNING
     Route: 058
  3. HUMALOG 50% LISPRO, 50% NPL [Suspect]
     Dosage: 27 IU, EACH EVENING
     Route: 058
  4. GALVUS MET [Concomitant]
     Indication: DIABETES MELLITUS
     Dosage: UNK, BID
     Route: 065
  5. ARADOIS [Concomitant]
     Indication: DIABETES MELLITUS
     Dosage: 50 MG, BID
     Route: 065
  6. CECLOR [Concomitant]
     Indication: BLOOD CHOLESTEROL
     Dosage: 50 MG, QD
     Route: 065
  7. CEFALIV [Concomitant]
     Indication: MIGRAINE
     Dosage: UNK, UNKNOWN
     Route: 065

REACTIONS (5)
  - Blindness [Not Recovered/Not Resolved]
  - Eye haemorrhage [Not Recovered/Not Resolved]
  - Hypoglycaemia [Not Recovered/Not Resolved]
  - Blood glucose fluctuation [Not Recovered/Not Resolved]
  - Tremor [Not Recovered/Not Resolved]
